FAERS Safety Report 19079902 (Version 1)
Quarter: 2021Q1

REPORT INFORMATION
  Report Type: Spontaneous
  Country: LT (occurrence: LT)
  Receive Date: 20210331
  Receipt Date: 20210331
  Transmission Date: 20210420
  Serious: Yes (Hospitalization)
  Sender: FDA-Public Use
  Company Number: NVSC2021LT066616

PATIENT
  Sex: Female
  Weight: 70 kg

DRUGS (1)
  1. ZOLPIDEM [Suspect]
     Active Substance: ZOLPIDEM TARTRATE
     Indication: PRODUCT USED FOR UNKNOWN INDICATION
     Dosage: UNK (NUMBER OF TABLETS USED WAS NOT SPECIFIED)
     Route: 048
     Dates: start: 20210225, end: 20210225

REACTIONS (3)
  - Somnolence [Recovered/Resolved]
  - Intentional overdose [Recovered/Resolved]
  - Asthenia [Recovered/Resolved]

NARRATIVE: CASE EVENT DATE: 20210225
